FAERS Safety Report 5155452-9 (Version None)
Quarter: 2006Q4

REPORT INFORMATION
  Report Type: 
  Country: None (occurrence: None)
  Receive Date: 20061114
  Receipt Date: 20061025
  Transmission Date: 20070319
  Serious: Yes (Hospitalization, Other)
  Sender: FDA-Public Use
  Company Number: US-2006-028458

PATIENT
  Age: 58 Year
  Sex: Male
  Weight: 112.9 kg

DRUGS (2)
  1. BETASERON [Suspect]
     Indication: RELAPSING-REMITTING MULTIPLE SCLEROSIS
     Dosage: SUBCUTANEOUS, 8 MIU, EVERY 2D, SUBCUTANEOUS
     Route: 058
     Dates: start: 19970730, end: 20060901
  2. BETASERON [Suspect]
     Indication: RELAPSING-REMITTING MULTIPLE SCLEROSIS
     Dosage: SUBCUTANEOUS, 8 MIU, EVERY 2D, SUBCUTANEOUS
     Route: 058
     Dates: start: 19890101

REACTIONS (3)
  - ANAEMIA HAEMOLYTIC AUTOIMMUNE [None]
  - JAUNDICE [None]
  - VERTIGO [None]
